FAERS Safety Report 4966430-4 (Version None)
Quarter: 2006Q2

REPORT INFORMATION
  Report Type: 
  Country: None (occurrence: None)
  Receive Date: 20060407
  Receipt Date: 20060223
  Transmission Date: 20061013
  Serious: Yes (Life-Threatening)
  Sender: FDA-Public Use
  Company Number: JP-ROCHE-438263

PATIENT
  Age: 54 Year
  Sex: Female
  Weight: 54 kg

DRUGS (5)
  1. TAMIFLU [Suspect]
     Indication: INFLUENZA
     Route: 048
     Dates: start: 20060204, end: 20060204
  2. BUFFERIN [Suspect]
     Indication: INFLUENZA
     Route: 048
     Dates: start: 20060203, end: 20060203
  3. PA [Concomitant]
     Route: 048
     Dates: start: 20060204, end: 20060205
  4. ASVERIN [Concomitant]
     Route: 048
     Dates: start: 20060204, end: 20060205
  5. PRIMPERAN TAB [Concomitant]
     Route: 048
     Dates: start: 20060204, end: 20060205

REACTIONS (9)
  - HYPERGLYCAEMIA [None]
  - HYPOXIA [None]
  - INFECTION [None]
  - KETOACIDOSIS [None]
  - LARYNGEAL OEDEMA [None]
  - METABOLIC ACIDOSIS [None]
  - PNEUMONIA CHLAMYDIAL [None]
  - SPUTUM RETENTION [None]
  - THERAPY NON-RESPONDER [None]
